FAERS Safety Report 6478162 (Version 21)
Quarter: 2014Q2

REPORT INFORMATION
  Report Type: Spontaneous
  Country: US (occurrence: US)
  Receive Date: 20071130
  Receipt Date: 20140523
  Transmission Date: 20141212
  Serious: Yes (Death, Other)
  Sender: FDA-Public Use
  Company Number: PHEH2007US15186

PATIENT
  Age: 54 Year
  Sex: Female
  Weight: 52.61 kg

DRUGS (47)
  1. ZOMETA [Suspect]
     Indication: NEOPLASM MALIGNANT
     Dates: start: 200511, end: 200802
  2. ZOMETA [Suspect]
     Dates: start: 2008
  3. PERIDEX [Concomitant]
  4. ANTINEOPLASTIC AGENTS [Concomitant]
  5. BOTOX [Concomitant]
     Dates: start: 2001
  6. KLONOPIN [Concomitant]
     Indication: ANXIETY
  7. ALEVE                              /00256202/ [Concomitant]
  8. HERCEPTIN ^GENENTECH^ [Concomitant]
  9. TAMOXIFEN [Concomitant]
     Dosage: 10 MG, QD
  10. NEULASTA [Concomitant]
     Route: 058
  11. LEXAPRO [Concomitant]
  12. VITAMIN B [Concomitant]
  13. FISH OIL [Concomitant]
  14. COQ10 [Concomitant]
  15. VITAMIN C [Concomitant]
  16. CLONAZEPAM [Concomitant]
     Dosage: 0.5 MG, TID
  17. HERBAL EXTRACTS NOS [Concomitant]
  18. ZOLOFT (SERTRALINE HYDROCHLORIDE) [Concomitant]
     Indication: DEPRESSION
  19. SKELAXIN [Concomitant]
  20. SINEMET [Concomitant]
  21. PAXIL [Concomitant]
     Indication: DEPRESSION
     Dates: start: 200101
  22. MULTIVITAMINS [Concomitant]
  23. CALCIUM [Concomitant]
  24. CELEXA [Concomitant]
     Indication: DEPRESSION
  25. VEETIDS [Concomitant]
  26. ZITHROMAX Z-PACK [Concomitant]
  27. ALOXI [Concomitant]
     Route: 042
  28. DECADRON                                /CAN/ [Concomitant]
     Route: 042
  29. DOCETAXEL [Concomitant]
  30. TAXOTERE [Concomitant]
  31. LEVAQUIN [Concomitant]
     Dates: start: 20080320
  32. VICODIN [Concomitant]
     Indication: PAIN IN JAW
     Dates: start: 20080201
  33. VENLAFAXINE [Concomitant]
     Dosage: 75 MG, TID
  34. AVELOX [Concomitant]
     Dosage: 400 MG,
     Dates: start: 20071231
  35. CLINDAMYCIN [Concomitant]
     Dosage: 300 MG,
  36. TYLOX [Concomitant]
     Indication: PAIN
  37. KENALOG [Concomitant]
  38. VOLTAREN                           /00372303/ [Concomitant]
  39. ADRIAMYCIN [Concomitant]
  40. CYTOXAN [Concomitant]
  41. EMEND [Concomitant]
  42. WELLBUTRIN SR [Concomitant]
  43. TRASTUZUMAB [Concomitant]
  44. TYKERB [Concomitant]
  45. FLUOROURACIL [Concomitant]
  46. CYMBALTA [Concomitant]
  47. CALCIUM WITH VITAMIN D [Concomitant]

REACTIONS (89)
  - Death [Fatal]
  - Depression [Unknown]
  - Metastases to bone [Unknown]
  - Metastases to lung [Unknown]
  - Metastases to liver [Unknown]
  - Tumour invasion [Unknown]
  - Osteonecrosis of jaw [Unknown]
  - Pain [Unknown]
  - Hypophagia [Unknown]
  - Deformity [Unknown]
  - Emotional distress [Unknown]
  - Anxiety [Unknown]
  - Anhedonia [Unknown]
  - Tooth abscess [Unknown]
  - Hypoaesthesia oral [Unknown]
  - Dysgeusia [Unknown]
  - Bone disorder [Unknown]
  - Tooth disorder [Unknown]
  - Toothache [Unknown]
  - Dental caries [Unknown]
  - Osteoradionecrosis [Unknown]
  - Swelling face [Unknown]
  - Swelling [Unknown]
  - Erythema [Unknown]
  - Myofascial pain syndrome [Unknown]
  - Chronic sinusitis [Unknown]
  - Sensory disturbance [Unknown]
  - Mass [Unknown]
  - Periodontal disease [Unknown]
  - Anaemia [Unknown]
  - Sinus congestion [Unknown]
  - Cough [Unknown]
  - Chest discomfort [Unknown]
  - Cervical radiculopathy [Unknown]
  - Hypoaesthesia [Unknown]
  - Bronchitis [Unknown]
  - Constipation [Unknown]
  - Haemorrhoids [Unknown]
  - Cervical dysplasia [Unknown]
  - Cervicitis human papilloma virus [Unknown]
  - Torticollis [Unknown]
  - Suicidal ideation [Unknown]
  - Paraesthesia [Unknown]
  - Neuropathy peripheral [Unknown]
  - Spinal osteoarthritis [Unknown]
  - Breast mass [Unknown]
  - Haemangioma [Recovered/Resolved]
  - Renal cyst [Unknown]
  - Rash [Unknown]
  - Musculoskeletal chest pain [Unknown]
  - Skin disorder [Unknown]
  - Red blood cell count decreased [Unknown]
  - Bone marrow disorder [Unknown]
  - Metabolic disorder [Unknown]
  - Invasive ductal breast carcinoma [Unknown]
  - Metastases to central nervous system [Unknown]
  - Brain mass [Unknown]
  - Brain oedema [Unknown]
  - Spinal disorder [Unknown]
  - Osteosclerosis [Unknown]
  - Intervertebral disc protrusion [Unknown]
  - Nerve root compression [Unknown]
  - Jaw fracture [Unknown]
  - Malignant neoplasm progression [Unknown]
  - Radiation injury [Unknown]
  - Pulmonary mass [Unknown]
  - Pleural fibrosis [Unknown]
  - Arthropathy [Unknown]
  - Convulsion [Unknown]
  - Muscle twitching [Unknown]
  - Unresponsive to stimuli [Unknown]
  - Lethargy [Unknown]
  - Metastases to spine [Unknown]
  - Fall [Unknown]
  - Visual impairment [Unknown]
  - Oral infection [Unknown]
  - Dizziness [Unknown]
  - Muscle spasms [Unknown]
  - Pain in jaw [Unknown]
  - Osteorrhagia [Unknown]
  - Osteomyelitis [Unknown]
  - Urinary incontinence [Unknown]
  - Central nervous system necrosis [Unknown]
  - Respiratory distress [Unknown]
  - Confusional state [Unknown]
  - Dyspnoea exertional [Unknown]
  - Musculoskeletal pain [Unknown]
  - Amnesia [Unknown]
  - Gait disturbance [Unknown]
